FAERS Safety Report 14870062 (Version 2)
Quarter: 2018Q2

REPORT INFORMATION
  Report Type: Spontaneous
  Country: FR (occurrence: FR)
  Receive Date: 20180509
  Receipt Date: 20180625
  Transmission Date: 20180711
  Serious: Yes (Death, Hospitalization)
  Sender: FDA-Public Use
  Company Number: FR-PFIZER INC-2018187448

PATIENT
  Age: 69 Year
  Sex: Male

DRUGS (5)
  1. DOXORUBICINE TEVA [Suspect]
     Active Substance: DOXORUBICIN
     Indication: B-CELL LYMPHOMA
     Dosage: 100 MG, 6 CURES
     Route: 042
     Dates: start: 20171026, end: 20180212
  2. ENDOXAN [Suspect]
     Active Substance: CYCLOPHOSPHAMIDE
     Indication: B-CELL LYMPHOMA
     Dosage: 1.5 G, UNK, (6 CURES)
     Route: 042
     Dates: start: 20171026, end: 20180212
  3. IMETH /00113801/ [Suspect]
     Active Substance: METHOTREXATE
     Indication: B-CELL LYMPHOMA
     Dosage: 5970 MG
     Route: 042
     Dates: start: 20180227, end: 20180227
  4. MABTHERA [Suspect]
     Active Substance: RITUXIMAB
     Indication: B-CELL LYMPHOMA
     Dosage: 1.4 G, (6 CURES)
     Route: 058
     Dates: start: 20171026, end: 20180212
  5. VINCRISTINE HOSPIRA [Suspect]
     Active Substance: VINCRISTINE
     Indication: B-CELL LYMPHOMA
     Dosage: 2 MG, 6 CURES
     Route: 042
     Dates: start: 20171026, end: 20180212

REACTIONS (1)
  - Interstitial lung disease [Fatal]

NARRATIVE: CASE EVENT DATE: 20180301
